FAERS Safety Report 21735547 (Version 1)
Quarter: 2022Q4

REPORT INFORMATION
  Report Type: Spontaneous
  Country: US (occurrence: US)
  Receive Date: 20221215
  Receipt Date: 20221215
  Transmission Date: 20230113
  Serious: No
  Sender: FDA-Public Use
  Company Number: US-BAYER-2022A170289

PATIENT
  Sex: Male

DRUGS (2)
  1. KERENDIA [Suspect]
     Active Substance: FINERENONE
     Dosage: 10MG
  2. KERENDIA [Suspect]
     Active Substance: FINERENONE
     Dosage: 20MG

REACTIONS (1)
  - Urine albumin/creatinine ratio increased [Not Recovered/Not Resolved]
